FAERS Safety Report 9336884 (Version 1)
Quarter: 2013Q2

REPORT INFORMATION
  Report Type: Spontaneous
  Country: CO (occurrence: CO)
  Receive Date: 20130607
  Receipt Date: 20130607
  Transmission Date: 20140414
  Serious: Yes (Other)
  Sender: FDA-Public Use
  Company Number: CO-PFIZER INC-2013169731

PATIENT
  Age: 61 Year
  Sex: Female

DRUGS (1)
  1. LYRICA [Suspect]
     Indication: MUSCULOSKELETAL STIFFNESS
     Dosage: 150 MG, 1X/DAY
     Route: 048
     Dates: start: 201204, end: 201205

REACTIONS (5)
  - Off label use [Unknown]
  - Gait disturbance [Unknown]
  - Dysstasia [Unknown]
  - Depression [Recovered/Resolved]
  - Musculoskeletal stiffness [Not Recovered/Not Resolved]
